FAERS Safety Report 20516180 (Version 1)
Quarter: 2022Q1

REPORT INFORMATION
  Report Type: Spontaneous
  Country: US (occurrence: US)
  Receive Date: 20220225
  Receipt Date: 20220225
  Transmission Date: 20220423
  Serious: No
  Sender: FDA-Public Use
  Company Number: US-009507513-2202USA001864

PATIENT
  Age: 68 Year
  Sex: Female

DRUGS (4)
  1. TEMODAR [Suspect]
     Active Substance: TEMOZOLOMIDE
     Indication: Brain neoplasm
     Dosage: UNK, IN CYCLES STARTS TAKING ON DAY 10 OF 2 WEEK-CYCLE WITH CAPECITABINE, AT NIGHT
     Route: 048
     Dates: start: 202110
  2. TEMODAR [Suspect]
     Active Substance: TEMOZOLOMIDE
     Indication: Carcinoid tumour
  3. CAPECITABINE [Concomitant]
     Active Substance: CAPECITABINE
     Indication: Brain neoplasm
     Dosage: 500 MG/FREQUENCY ^2 IN THE MORNING AND 2 AT NIGHT^
     Route: 048
     Dates: start: 202110
  4. CAPECITABINE [Concomitant]
     Active Substance: CAPECITABINE
     Indication: Carcinoid tumour

REACTIONS (2)
  - Nausea [Unknown]
  - Product use in unapproved indication [Unknown]

NARRATIVE: CASE EVENT DATE: 20211001
